FAERS Safety Report 9920412 (Version 1)
Quarter: 2014Q1

REPORT INFORMATION
  Report Type: Spontaneous
  Country: US (occurrence: US)
  Receive Date: 20140224
  Receipt Date: 20140224
  Transmission Date: 20141002
  Serious: No
  Sender: FDA-Public Use
  Company Number: US-GILEAD-2014-0095052

PATIENT
  Sex: Female

DRUGS (2)
  1. LETAIRIS [Suspect]
     Indication: PRODUCT USED FOR UNKNOWN INDICATION
     Dosage: 10 MG, QD
     Route: 048
     Dates: start: 20120920
  2. REMODULIN [Concomitant]

REACTIONS (5)
  - Pyrexia [Unknown]
  - Skin burning sensation [Unknown]
  - Nasopharyngitis [Unknown]
  - Nasal congestion [Unknown]
  - Oropharyngeal pain [Unknown]
